FAERS Safety Report 6865354-5 (Version None)
Quarter: 2010Q3

REPORT INFORMATION
  Report Type: 
  Country: None (occurrence: None)
  Receive Date: 20100721
  Receipt Date: 20080420
  Transmission Date: 20110219
  Serious: No
  Sender: FDA-Public Use
  Company Number: US-PFIZER INC-2008034953

PATIENT
  Sex: Female
  Weight: 104.5 kg

DRUGS (14)
  1. CHANTIX [Suspect]
     Indication: SMOKING CESSATION THERAPY
     Route: 048
     Dates: start: 20080419
  2. METOPROLOL [Concomitant]
  3. WARFARIN SODIUM [Concomitant]
  4. AMITRIPTYLINE HYDROCHLORIDE [Concomitant]
  5. HYDROCHLOROTHIAZIDE [Concomitant]
  6. PREVACID [Concomitant]
  7. TRAZODONE HYDROCHLORIDE [Concomitant]
  8. WARFARIN SODIUM [Concomitant]
  9. POTASSIUM CHLORIDE [Concomitant]
  10. MIRAPEX [Concomitant]
  11. VICODIN [Concomitant]
  12. VYTORIN [Concomitant]
  13. SERETIDE MITE [Concomitant]
  14. ALL OTHER THERAPEUTIC PRODUCTS [Concomitant]

REACTIONS (4)
  - ABDOMINAL PAIN UPPER [None]
  - DIZZINESS [None]
  - NAUSEA [None]
  - VOMITING [None]
